FAERS Safety Report 5461001-8 (Version None)
Quarter: 2007Q3

REPORT INFORMATION
  Report Type: 
  Country: None (occurrence: None)
  Receive Date: 20070822
  Receipt Date: 20070424
  Transmission Date: 20080115
  Serious: Yes (Other)
  Sender: FDA-Public Use
  Company Number: 2007033504

PATIENT
  Age: 70 Year
  Sex: Female
  Weight: 75 kg

DRUGS (7)
  1. NORVASC [Suspect]
     Indication: HYPERTENSION
     Dosage: 5 MG (5 MG, 1 IN 1 D)
     Dates: start: 20061001, end: 20061101
  2. LEVOXYL [Concomitant]
  3. ALL OTHER THERAPEUTIC PRODUCTS (ALL OTHER THERAPEUTIC PRODUCTS) [Concomitant]
  4. CALCIUM (CALCIUM) [Concomitant]
  5. VITAMIN D [Concomitant]
  6. PHYTONADIONE [Concomitant]
  7. MULTIVITAMIN [Concomitant]

REACTIONS (2)
  - BLEPHARITIS [None]
  - EYELID FUNCTION DISORDER [None]
